FAERS Safety Report 9221498 (Version 1)
Quarter: 2013Q2

REPORT INFORMATION
  Report Type: Spontaneous
  Country: US (occurrence: None)
  Receive Date: 20130408
  Receipt Date: 20130408
  Transmission Date: 20140414
  Serious: Yes (Hospitalization, Other)
  Sender: FDA-Public Use
  Company Number: 2013AP004019

PATIENT
  Age: 60 Year
  Sex: Female

DRUGS (3)
  1. ALENDRONATE (ALENDRONATE SODIUM) [Suspect]
     Indication: OSTEOPOROSIS
     Route: 048
     Dates: start: 20110321
  2. ADCAL-D3 (LEKOVIT CA) [Concomitant]
  3. CITALOPRAM HYDROBROMIDE (CITALOPRAM HYDROBROMIDE) [Concomitant]

REACTIONS (3)
  - Abscess jaw [None]
  - Malaise [None]
  - Osteonecrosis of jaw [None]
